FAERS Safety Report 4673049-1 (Version None)
Quarter: 2005Q2

REPORT INFORMATION
  Report Type: 
  Country: None (occurrence: None)
  Receive Date: 20050525
  Receipt Date: 20050513
  Transmission Date: 20051028
  Serious: Yes (Other)
  Sender: FDA-Public Use
  Company Number: US-JNJFOC-20050200619

PATIENT
  Sex: Male

DRUGS (20)
  1. REMICADE [Suspect]
     Route: 042
  2. REMICADE [Suspect]
     Route: 042
  3. REMICADE [Suspect]
     Indication: RHEUMATOID ARTHRITIS
     Route: 042
  4. VIOXX [Concomitant]
  5. ACIPHEX [Concomitant]
  6. SYNTHROID [Concomitant]
  7. METHOTREXATE [Concomitant]
     Route: 049
  8. FOLIC ACID [Concomitant]
  9. PRINIVIL [Concomitant]
  10. TOPROL-XL [Concomitant]
  11. HYDROCHLOROTHIAZIDE [Concomitant]
  12. BENICAR [Concomitant]
  13. MULTIVITAMIN [Concomitant]
  14. MULTIVITAMIN [Concomitant]
  15. MULTIVITAMIN [Concomitant]
  16. MULTIVITAMIN [Concomitant]
  17. MULTIVITAMIN [Concomitant]
  18. MULTIVITAMIN [Concomitant]
  19. MULTIVITAMIN [Concomitant]
  20. MULTIVITAMIN [Concomitant]

REACTIONS (1)
  - MALIGNANT MELANOMA [None]
